FAERS Safety Report 17463154 (Version 4)
Quarter: 2020Q3

REPORT INFORMATION
  Report Type: Report from Study
  Country: US (occurrence: US)
  Receive Date: 20200226
  Receipt Date: 20200912
  Transmission Date: 20201102
  Serious: Yes (Other)
  Sender: FDA-Public Use
  Company Number: NVSC2020US053010

PATIENT
  Age: 72 Year
  Sex: Female

DRUGS (1)
  1. ENTRESTO [Suspect]
     Active Substance: SACUBITRIL\VALSARTAN
     Indication: CARDIAC FAILURE
     Dosage: 1 DF, BID (24/26MG)
     Route: 048
     Dates: start: 202001

REACTIONS (3)
  - Mass [Unknown]
  - Hypotension [Not Recovered/Not Resolved]
  - Syncope [Unknown]

NARRATIVE: CASE EVENT DATE: 202002
